FAERS Safety Report 4748286-8 (Version None)
Quarter: 2005Q3

REPORT INFORMATION
  Report Type: 
  Country: None (occurrence: None)
  Receive Date: 20050815
  Receipt Date: 20050622
  Transmission Date: 20060218
  Serious: No
  Sender: FDA-Public Use
  Company Number: USA0506101118

PATIENT
  Age: 62 Year
  Sex: Male
  Weight: 80 kg

DRUGS (6)
  1. CYMBALTA [Suspect]
     Indication: DEPRESSION
     Dosage: 30 MG DAY
     Dates: start: 20050601
  2. CIALIS [Suspect]
  3. LIPITOR [Concomitant]
  4. AVELOX [Concomitant]
  5. TOPROL-XL [Concomitant]
  6. PRILOSEC [Concomitant]

REACTIONS (4)
  - BOWEL MOVEMENT IRREGULARITY [None]
  - EJACULATION DISORDER [None]
  - NAUSEA [None]
  - WEIGHT INCREASED [None]
